FAERS Safety Report 19116051 (Version 1)
Quarter: 2021Q2

REPORT INFORMATION
  Report Type: Spontaneous
  Country: US (occurrence: US)
  Receive Date: 20210409
  Receipt Date: 20210409
  Transmission Date: 20210717
  Serious: Yes (Other)
  Sender: FDA-Public Use
  Company Number: US-HIKMA PHARMACEUTICALS USA INC.-US-H14001-21-01699

PATIENT
  Age: 36 Year
  Sex: Male

DRUGS (3)
  1. PEMETREXED. [Suspect]
     Active Substance: PEMETREXED
     Indication: PERITONEAL MESOTHELIOMA MALIGNANT
     Dosage: UNKNOWN
     Route: 065
  2. CISPLATIN. [Suspect]
     Active Substance: CISPLATIN
     Indication: PERITONEAL MESOTHELIOMA MALIGNANT
     Dosage: UNKNOWN
     Route: 065
  3. BEVACIZUMAB. [Suspect]
     Active Substance: BEVACIZUMAB
     Indication: PERITONEAL MESOTHELIOMA MALIGNANT
     Dosage: UNKNOWN
     Route: 065

REACTIONS (1)
  - Intestinal perforation [Unknown]
